FAERS Safety Report 8244899-X (Version None)
Quarter: 2012Q1

REPORT INFORMATION
  Report Type: 
  Country: None (occurrence: None)
  Receive Date: 20120329
  Receipt Date: 20110825
  Transmission Date: 20120608
  Serious: No
  Sender: FDA-Public Use
  Company Number: US-MYLANLABS-2011S1017868

PATIENT
  Age: 57 Year
  Sex: Female

DRUGS (7)
  1. STEROIDS [Concomitant]
     Indication: MIGRAINE
     Dates: start: 20110818, end: 20110818
  2. BUPROPION HCL [Concomitant]
     Indication: MIGRAINE
     Route: 048
  3. OMEPRAZOLE [Concomitant]
     Indication: GASTROOESOPHAGEAL REFLUX DISEASE
     Route: 048
  4. RANITIDINE [Concomitant]
     Indication: GASTROOESOPHAGEAL REFLUX DISEASE
     Route: 048
  5. STEROIDS [Concomitant]
     Route: 048
  6. TOPAMAX [Concomitant]
     Indication: MIGRAINE
     Route: 048
  7. FENTANYL-100 [Suspect]
     Indication: MIGRAINE
     Dosage: QOD
     Route: 062
     Dates: start: 20080101, end: 20110819

REACTIONS (1)
  - WITHDRAWAL SYNDROME [None]
